FAERS Safety Report 5475278-6 (Version None)
Quarter: 2007Q4

REPORT INFORMATION
  Report Type: 
  Country: None (occurrence: None)
  Receive Date: 20071002
  Receipt Date: 20070926
  Transmission Date: 20080405
  Serious: Yes (Life-Threatening, Hospitalization, Disabling, Other)
  Sender: FDA-Public Use
  Company Number: US-MERCK-0708USA05313

PATIENT
  Age: 64 Year
  Sex: Male
  Weight: 84 kg

DRUGS (8)
  1. ZOCOR [Suspect]
     Indication: BLOOD CHOLESTEROL INCREASED
     Route: 048
     Dates: start: 19920101
  2. ZOCOR [Suspect]
     Route: 048
     Dates: end: 20070801
  3. ZYLOPRIM [Concomitant]
     Route: 048
  4. COZAAR [Concomitant]
     Route: 048
  5. COZAAR [Concomitant]
     Route: 048
  6. ATENOLOL [Concomitant]
     Route: 065
  7. ASPIRIN [Concomitant]
     Route: 048
  8. UROCIT-K [Concomitant]
     Route: 065

REACTIONS (2)
  - GALLBLADDER ENLARGEMENT [None]
  - PANCREATIC CARCINOMA [None]
